FAERS Safety Report 9043210 (Version 1)
Quarter: 2013Q1

REPORT INFORMATION
  Report Type: Report from Study
  Country: US (occurrence: US)
  Receive Date: 20130129
  Receipt Date: 20130129
  Transmission Date: 20140127
  Serious: No
  Sender: FDA-Public Use
  Company Number: US-ABBOTT-12P-163-0914187-00

PATIENT
  Sex: 0
  Weight: 79.45 kg

DRUGS (3)
  1. HUMIRA 40 MG/0.8 ML PEN [Suspect]
     Indication: CROHN^S DISEASE
     Dates: start: 2005, end: 2008
  2. HUMIRA 40 MG/0.8 ML PEN [Suspect]
     Dates: start: 2009
  3. VITAMINS [Concomitant]
     Indication: VITAMIN SUPPLEMENTATION

REACTIONS (4)
  - Drug ineffective [Unknown]
  - Weight decreased [Recovered/Resolved]
  - Crohn^s disease [Unknown]
  - Scar [Unknown]
